FAERS Safety Report 12364384 (Version 1)
Quarter: 2016Q2

REPORT INFORMATION
  Report Type: Spontaneous
  Country: FR (occurrence: FR)
  Receive Date: 20160513
  Receipt Date: 20160513
  Transmission Date: 20160815
  Serious: Yes (Hospitalization, Other)
  Sender: FDA-Public Use
  Company Number: FR-JNJFOC-20160509742

PATIENT
  Age: 20 Year
  Sex: Female

DRUGS (4)
  1. IXPRIM [Suspect]
     Active Substance: ACETAMINOPHEN\TRAMADOL HYDROCHLORIDE
     Indication: POISONING DELIBERATE
     Route: 048
     Dates: start: 20160318, end: 20160318
  2. LYRICA [Suspect]
     Active Substance: PREGABALIN
     Indication: POISONING DELIBERATE
     Route: 048
     Dates: start: 20160318, end: 20160318
  3. ASCORBIC ACID W/PARACETAMOL/PHENIRAMINE [Suspect]
     Active Substance: ACETAMINOPHEN\ASCORBIC ACID\PHENIRAMINE
     Indication: POISONING DELIBERATE
     Route: 048
     Dates: start: 20160318, end: 20160318
  4. DOLIPRANE [Suspect]
     Active Substance: ACETAMINOPHEN
     Indication: POISONING DELIBERATE
     Route: 048
     Dates: start: 20160318, end: 20160318

REACTIONS (3)
  - Intentional overdose [Recovered/Resolved]
  - Poisoning deliberate [None]
  - Coma [Recovered/Resolved]

NARRATIVE: CASE EVENT DATE: 20160318
